FAERS Safety Report 5537316-1 (Version None)
Quarter: 2007Q4

REPORT INFORMATION
  Report Type: 
  Country: None (occurrence: None)
  Receive Date: 20071207
  Receipt Date: 20071126
  Transmission Date: 20080405
  Serious: Yes (Hospitalization)
  Sender: FDA-Public Use
  Company Number: AU-AMGEN-US253991

PATIENT
  Sex: Male

DRUGS (4)
  1. PANITUMUMAB [Suspect]
     Indication: COLORECTAL CANCER
     Route: 042
     Dates: start: 20070919, end: 20071114
  2. FLUOROURACIL [Suspect]
     Route: 065
  3. LEUCOVORIN CALCIUM [Suspect]
     Route: 065
  4. IRINOTECAN HCL [Suspect]
     Route: 065

REACTIONS (1)
  - SMALL INTESTINAL OBSTRUCTION [None]
